FAERS Safety Report 12617935 (Version 2)
Quarter: 2016Q3

REPORT INFORMATION
  Report Type: Report from Study
  Country: JP (occurrence: JP)
  Receive Date: 20160803
  Receipt Date: 20160926
  Transmission Date: 20161109
  Serious: Yes (Hospitalization)
  Sender: FDA-Public Use
  Company Number: JP-CELGENEUS-JPN-2015105667

PATIENT
  Age: 60 Year
  Sex: Male
  Weight: 63.5 kg

DRUGS (21)
  1. ABRAXANE [Suspect]
     Active Substance: PACLITAXEL
     Indication: NON-SMALL CELL LUNG CANCER
     Route: 041
     Dates: start: 20151014, end: 20151014
  2. FOSAPREPITANT MEGLUMINE [Concomitant]
     Active Substance: FOSAPREPITANT
     Indication: PROPHYLAXIS OF NAUSEA AND VOMITING
     Route: 065
     Dates: start: 20151105
  3. CARBOPLATIN. [Suspect]
     Active Substance: CARBOPLATIN
     Route: 041
     Dates: start: 20151203
  4. PALONOSETRON HYDROCHLORIDE. [Concomitant]
     Active Substance: PALONOSETRON HYDROCHLORIDE
     Indication: PROPHYLAXIS OF NAUSEA AND VOMITING
     Route: 041
     Dates: start: 20151112, end: 20151112
  5. ABRAXANE [Suspect]
     Active Substance: PACLITAXEL
     Route: 041
     Dates: start: 20151119
  6. UREA. [Concomitant]
     Active Substance: UREA
     Indication: TINEA INFECTION
     Route: 061
  7. FOSAPREPITANT MEGLUMINE [Concomitant]
     Active Substance: FOSAPREPITANT
     Indication: PROPHYLAXIS OF NAUSEA AND VOMITING
     Route: 065
     Dates: start: 20151014, end: 20151014
  8. PALONOSETRON HYDROCHLORIDE. [Concomitant]
     Active Substance: PALONOSETRON HYDROCHLORIDE
     Route: 041
     Dates: start: 20151203
  9. NEO-MINOPHAGEN C [Concomitant]
     Active Substance: AMMONIUM GLYCYRRHIZATE
     Indication: HEPATIC FUNCTION ABNORMAL
     Route: 050
     Dates: start: 20151126, end: 20151130
  10. ABRAXANE [Suspect]
     Active Substance: PACLITAXEL
     Route: 041
     Dates: start: 20151021
  11. ABRAXANE [Suspect]
     Active Substance: PACLITAXEL
     Route: 041
     Dates: start: 20151112
  12. FOSAPREPITANT MEGLUMINE [Concomitant]
     Active Substance: FOSAPREPITANT
     Route: 065
     Dates: start: 20151203
  13. PALONOSETRON HYDROCHLORIDE. [Concomitant]
     Active Substance: PALONOSETRON HYDROCHLORIDE
     Indication: PROPHYLAXIS OF NAUSEA AND VOMITING
     Route: 041
     Dates: start: 20151014, end: 20151014
  14. ABRAXANE [Suspect]
     Active Substance: PACLITAXEL
     Route: 041
     Dates: start: 20151210
  15. MPDL3280A (ATEZOLIZUMAB) [Suspect]
     Active Substance: ATEZOLIZUMAB
     Indication: NON-SMALL CELL LUNG CANCER
     Route: 041
     Dates: start: 20151014, end: 20151014
  16. FOSAPREPITANT MEGLUMINE [Concomitant]
     Active Substance: FOSAPREPITANT
     Route: 065
     Dates: start: 20151112, end: 20151112
  17. MPDL3280A (ATEZOLIZUMAB) [Suspect]
     Active Substance: ATEZOLIZUMAB
     Route: 041
     Dates: start: 20151112, end: 20151112
  18. NETICONAZOLE HYDROCHLORIDE [Concomitant]
     Indication: TINEA INFECTION
     Route: 061
  19. MPDL3280A (ATEZOLIZUMAB) [Suspect]
     Active Substance: ATEZOLIZUMAB
     Route: 041
     Dates: start: 20151203
  20. CARBOPLATIN. [Suspect]
     Active Substance: CARBOPLATIN
     Indication: NON-SMALL CELL LUNG CANCER
     Route: 041
     Dates: start: 20151014, end: 20151014
  21. CARBOPLATIN. [Suspect]
     Active Substance: CARBOPLATIN
     Route: 041
     Dates: start: 20151112, end: 20151112

REACTIONS (6)
  - Influenza like illness [Recovered/Resolved]
  - Influenza like illness [Recovered/Resolved]
  - Influenza like illness [Recovered/Resolved]
  - Influenza like illness [Recovered/Resolved]
  - Influenza like illness [Recovered/Resolved]
  - Pericardial effusion [Recovered/Resolved]

NARRATIVE: CASE EVENT DATE: 20151016
